FAERS Safety Report 9338222 (Version 2)
Quarter: 2013Q2

REPORT INFORMATION
  Report Type: Spontaneous
  Country: JP (occurrence: JP)
  Receive Date: 20130610
  Receipt Date: 20130619
  Transmission Date: 20140414
  Serious: Yes (Life-Threatening)
  Sender: FDA-Public Use
  Company Number: JP-B.I. PHARMACEUTICALS,INC./RIDGEFIELD-2013-BI-16001NB

PATIENT
  Age: 71 Year
  Sex: Male
  Weight: 68 kg

DRUGS (1)
  1. PRAZAXA [Suspect]
     Indication: ATRIAL FIBRILLATION
     Dosage: 300 MG
     Route: 048
     Dates: start: 20130525, end: 20130531

REACTIONS (2)
  - Cerebral artery embolism [Recovered/Resolved]
  - Drug effect incomplete [Unknown]
